FAERS Safety Report 10565221 (Version 1)
Quarter: 2014Q4

REPORT INFORMATION
  Report Type: Report from Study
  Country: CO (occurrence: CO)
  Receive Date: 20141105
  Receipt Date: 20141105
  Transmission Date: 20150529
  Serious: Yes (Hospitalization)
  Sender: FDA-Public Use
  Company Number: CO-AMGEN-COLSL2014084552

PATIENT
  Sex: Male

DRUGS (1)
  1. NPLATE [Suspect]
     Active Substance: ROMIPLOSTIM
     Indication: THROMBOCYTOPENIC PURPURA
     Dosage: 40 MUG, QWK
     Route: 058
     Dates: start: 20121022

REACTIONS (2)
  - Platelet count decreased [Unknown]
  - Petechiae [Unknown]

NARRATIVE: CASE EVENT DATE: 2014
